FAERS Safety Report 24677879 (Version 2)
Quarter: 2025Q3

REPORT INFORMATION
  Report Type: Report from Study
  Country: US (occurrence: US)
  Receive Date: 20241129
  Receipt Date: 20250809
  Transmission Date: 20251021
  Serious: Yes (Other)
  Sender: ALEXION PHARMACEUTICALS
  Company Number: US-ASTRAZENECA-2024A137127

PATIENT
  Sex: Female

DRUGS (10)
  1. TAGRISSO [Suspect]
     Active Substance: OSIMERTINIB
     Indication: Bronchial carcinoma
     Dosage: 40 MILLIGRAM, QD
  2. ROSUVASTATIN [Concomitant]
     Active Substance: ROSUVASTATIN
  3. SYMBICORT AEROSPHERE [Concomitant]
     Active Substance: BUDESONIDE\FORMOTEROL FUMARATE
  4. RAMIPRIL [Concomitant]
     Active Substance: RAMIPRIL
  5. GABAPENTIN [Concomitant]
     Active Substance: GABAPENTIN
  6. METOPROLOL SUCCINATE [Concomitant]
     Active Substance: METOPROLOL SUCCINATE
  7. ALBUTEROL [Concomitant]
     Active Substance: ALBUTEROL
  8. ASPIRIN [Concomitant]
     Active Substance: ASPIRIN
  9. CLOPIDOGREL [Concomitant]
     Active Substance: CLOPIDOGREL BISULFATE
  10. OSIMERTINIB [Suspect]
     Active Substance: OSIMERTINIB

REACTIONS (11)
  - Cardiac disorder [Unknown]
  - Vomiting [Unknown]
  - Pain [Unknown]
  - Fatigue [Unknown]
  - Nausea [Unknown]
  - Decreased appetite [Unknown]
  - Constipation [Unknown]
  - Diarrhoea [Unknown]
  - Depression [Unknown]
  - Asthenia [Unknown]
  - Malaise [Unknown]
